FAERS Safety Report 8768411 (Version 1)
Quarter: 2012Q4

REPORT INFORMATION
  Report Type: 
  Country: US (occurrence: US)
  Receive Date: 20120904
  Receipt Date: 20120904
  Transmission Date: 20130627
  Serious: No
  Sender: FDA-Public Use
  Company Number: US-AMGEN-USASP2012050914

PATIENT
  Age: 51 Year
  Sex: Female

DRUGS (7)
  1. ENBREL [Suspect]
     Indication: RHEUMATOID ARTHRITIS
     Dosage: 50 mg, qwk
     Dates: start: 20120514
  2. MTX                                /00113801/ [Concomitant]
     Dosage: 20 mg, qwk
  3. PRED                               /00016201/ [Concomitant]
     Dosage: 5 mg, qd
  4. PLAGERINE                          /00042901/ [Concomitant]
     Dosage: 200 mg, qid
  5. IBUPROFEN [Concomitant]
     Dosage: 800 mg, tid
  6. BYSTOLIC [Concomitant]
     Dosage: UNK
  7. RANITIDINE [Concomitant]
     Dosage: 150 mg, bid

REACTIONS (1)
  - Breast abscess [Recovered/Resolved]
